FAERS Safety Report 6125723-8 (Version None)
Quarter: 2009Q1

REPORT INFORMATION
  Report Type: 
  Country: None (occurrence: None)
  Receive Date: 20090304
  Receipt Date: 20080918
  Transmission Date: 20090719
  Serious: Yes (Hospitalization)
  Sender: FDA-Public Use
  Company Number: 279379

PATIENT
  Age: 50 Year
  Sex: Male
  Weight: 82.1 kg

DRUGS (3)
  1. NOVOSEVEN RT [Suspect]
     Indication: HAEMARTHROSIS
     Dosage: 5 MG
  2. LISINOPRIL [Concomitant]
  3. PERCOCET [Concomitant]

REACTIONS (1)
  - DRUG INEFFECTIVE [None]
